FAERS Safety Report 5217427-0 (Version None)
Quarter: 2007Q1

REPORT INFORMATION
  Report Type: 
  Country: None (occurrence: None)
  Receive Date: 20070124
  Receipt Date: 20060222
  Transmission Date: 20070707
  Serious: No
  Sender: FDA-Public Use
  Company Number: US-GLAXOSMITHKLINE-A0594792A

PATIENT
  Age: 41 Year
  Sex: Female

DRUGS (4)
  1. PAXIL CR [Suspect]
     Dosage: 12.5MG PER DAY
     Route: 048
     Dates: start: 20020401
  2. PAXIL [Suspect]
     Route: 048
  3. LUPRON [Concomitant]
  4. MEDROL [Concomitant]

REACTIONS (2)
  - DRUG EXPOSURE DURING PREGNANCY [None]
  - HEADACHE [None]
